FAERS Safety Report 24907626 (Version 3)
Quarter: 2025Q3

REPORT INFORMATION
  Report Type: Report from Study
  Country: US (occurrence: US)
  Receive Date: 20250131
  Receipt Date: 20250809
  Transmission Date: 20251020
  Serious: Yes (Hospitalization, Other)
  Sender: ALEXION PHARMACEUTICALS
  Company Number: US-AstraZeneca-CH-00795329A

PATIENT
  Sex: Female

DRUGS (1)
  1. ULTOMIRIS [Suspect]
     Active Substance: RAVULIZUMAB-CWVZ
     Indication: Neuromyelitis optica spectrum disorder

REACTIONS (7)
  - Loss of consciousness [Unknown]
  - Skin infection [Unknown]
  - Localised infection [Unknown]
  - Sepsis [Unknown]
  - Blood pressure abnormal [Unknown]
  - Impaired healing [Unknown]
  - Wound infection [Unknown]
